FAERS Safety Report 6419816-5 (Version None)
Quarter: 2009Q4

REPORT INFORMATION
  Report Type: 
  Country: None (occurrence: None)
  Receive Date: 20091013
  Receipt Date: 20090807
  Transmission Date: 20100525
  Serious: Yes (Other)
  Sender: FDA-Public Use
  Company Number: US-JNJFOC-20090802829

PATIENT
  Age: 61 Year
  Sex: Female
  Weight: 90.7194 kg

DRUGS (3)
  1. MONISTAT 3 [Suspect]
     Indication: FUNGAL INFECTION
     Dosage: 200 MG, 1 IN 1 DAY, VAGINAL
     Route: 067
     Dates: start: 20090801, end: 20090801
  2. FEMARA [Concomitant]
  3. VANCOMYCIN [Concomitant]

REACTIONS (3)
  - LIP SWELLING [None]
  - PRURITUS [None]
  - URTICARIA [None]
